FAERS Safety Report 4463816-1 (Version None)
Quarter: 2004Q3

REPORT INFORMATION
  Report Type: 
  Country: None (occurrence: None)
  Receive Date: 20040929
  Receipt Date: 20040921
  Transmission Date: 20050211
  Serious: Yes (Other)
  Sender: FDA-Public Use
  Company Number: GB-2004-032257

PATIENT
  Sex: Male

DRUGS (1)
  1. FLUDARABINE (FLUDARABINE PHOSPHATE) [Suspect]
     Indication: WALDENSTROM'S MACROGLOBULINAEMIA
     Dosage: INTRAVENOUS
     Route: 042

REACTIONS (1)
  - RENAL FAILURE [None]
